FAERS Safety Report 26010940 (Version 1)
Quarter: 2025Q4

REPORT INFORMATION
  Report Type: Spontaneous
  Country: US (occurrence: None)
  Receive Date: 20251106
  Receipt Date: 20251106
  Transmission Date: 20260118
  Serious: Yes (Death)
  Sender: FDA-CTU
  Company Number: None

PATIENT
  Age: 94 Year
  Sex: Female

DRUGS (13)
  1. LOKELMA [Suspect]
     Active Substance: SODIUM ZIRCONIUM CYCLOSILICATE
     Indication: Hyperkalaemia
     Dosage: 10 GRAM(S) - GM 3 TIMES PER WEEK ORAL
     Route: 048
     Dates: start: 20250916
  2. CINACALCET [Suspect]
     Active Substance: CINACALCET
     Indication: Parathyroid disorder
     Dosage: 30 MG 3 TIMES PER WEEK ORAL
     Route: 048
     Dates: start: 20241204
  3. PROLIA [Concomitant]
     Active Substance: DENOSUMAB
     Dates: start: 20250916
  4. MOTEGRITY [Concomitant]
     Active Substance: PRUCALOPRIDE SUCCINATE
  5. DIETARY SUPPLEMENT [Concomitant]
     Active Substance: DIETARY SUPPLEMENT
  6. HYDRALAZINE [Concomitant]
     Active Substance: HYDRALAZINE HYDROCHLORIDE
  7. TRULANCE [Concomitant]
     Active Substance: PLECANATIDE
  8. EPOGEN [Concomitant]
     Active Substance: ERYTHROPOIETIN
  9. VITAMIN B12 [Concomitant]
     Active Substance: CYANOCOBALAMIN
  10. ASPIRIN [Concomitant]
     Active Substance: ASPIRIN
  11. PRESERVISION AR EDS 2 + MLTIVIT [Concomitant]
  12. MIRALAX [Concomitant]
     Active Substance: POLYETHYLENE GLYCOL 3350
  13. ATORVASTATIN [Concomitant]
     Active Substance: ATORVASTATIN

REACTIONS (1)
  - Death [None]

NARRATIVE: CASE EVENT DATE: 20251105
